FAERS Safety Report 4935902-0 (Version None)
Quarter: 2006Q1

REPORT INFORMATION
  Report Type: 
  Country: None (occurrence: None)
  Receive Date: 20060302
  Receipt Date: 20060213
  Transmission Date: 20060701
  Serious: Yes (Death, Other)
  Sender: FDA-Public Use
  Company Number: US200601002663

PATIENT
  Age: 61 Year
  Sex: Female
  Weight: 149.7 kg

DRUGS (16)
  1. XIGRIS [Suspect]
     Indication: SEPSIS
     Dosage: 24 UG/KG/HR INTRAVENOUS
     Route: 042
     Dates: start: 20051216, end: 20051220
  2. XIGRIS [Suspect]
     Indication: SEPSIS
     Dosage: 24 UG/KG/HR INTRAVENOUS
     Route: 042
     Dates: start: 20060106, end: 20060108
  3. PROTONIX [Concomitant]
  4. HYDROCORTISONE [Concomitant]
  5. DIFLUCAN [Concomitant]
  6. LEVAQUIN [Concomitant]
  7. ZYVOX [Concomitant]
  8. BACTRIM [Concomitant]
  9. PRIMAXIN [Concomitant]
  10. DIURIL (CHLOROTHIAZIDE) [Concomitant]
  11. BUMEX [Concomitant]
  12. VASOPRESSIN [Concomitant]
  13. NOREPINEPHRINE BITARTRATE [Concomitant]
  14. INSULIN (INSULIN) [Concomitant]
  15. MORPHINE [Concomitant]
  16. LORAZEPAM [Concomitant]

REACTIONS (5)
  - DISEASE RECURRENCE [None]
  - HAEMORRHAGE [None]
  - INTERNATIONAL NORMALISED RATIO INCREASED [None]
  - PLATELET COUNT DECREASED [None]
  - SEPSIS [None]
